FAERS Safety Report 7427966-X (Version None)
Quarter: 2011Q2

REPORT INFORMATION
  Report Type: 
  Country: None (occurrence: None)
  Receive Date: 20110412
  Receipt Date: 20110329
  Transmission Date: 20111010
  Serious: Yes (Life-Threatening)
  Sender: FDA-Public Use
  Company Number: 2011000431

PATIENT
  Age: 60 Year
  Sex: Female
  Weight: 74.2 kg

DRUGS (3)
  1. GEMCITABINE [Suspect]
     Indication: OVARIAN CANCER
     Dosage: (750 MG/M2, DAYS 1, 8, 15, 22, 29, 36. 43), INTRAVENOUS
     Route: 042
     Dates: start: 20110103, end: 20110110
  2. GDC-0449 [Suspect]
     Indication: OVARIAN CANCER
     Dosage: (150 MG, QD) , ORAL
     Route: 048
     Dates: start: 20110103, end: 20110117
  3. ERLOTINIB (ERLOTINIB) (TABLET) (ERLOTINIB) [Suspect]
     Indication: OVARIAN EPITHELIAL CANCER
     Dosage: (75 MG,QD) , ORAL
     Route: 048
     Dates: start: 20110103, end: 20110117

REACTIONS (3)
  - THROMBOCYTOPENIA [None]
  - DERMATITIS ACNEIFORM [None]
  - PYREXIA [None]
